FAERS Safety Report 9286164 (Version 1)
Quarter: 2013Q2

REPORT INFORMATION
  Report Type: Spontaneous
  Country: US (occurrence: None)
  Receive Date: 20130510
  Receipt Date: 20130510
  Transmission Date: 20140414
  Serious: No
  Sender: FDA-Public Use
  Company Number: None

PATIENT
  Age: 25 Year
  Sex: Female

DRUGS (1)
  1. AZITHROMYCIN [Suspect]
     Indication: BRONCHITIS
     Dates: start: 20111227, end: 20111231

REACTIONS (5)
  - Cholestasis [None]
  - Transaminases increased [None]
  - Drug-induced liver injury [None]
  - Diarrhoea [None]
  - Malabsorption [None]
